FAERS Safety Report 12435574 (Version 1)
Quarter: 2016Q2

REPORT INFORMATION
  Report Type: Spontaneous
  Country: US (occurrence: US)
  Receive Date: 20160603
  Receipt Date: 20160603
  Transmission Date: 20160815
  Serious: Yes (Other)
  Sender: FDA-Public Use
  Company Number: US-ROCHE-1657031

PATIENT
  Sex: Female

DRUGS (3)
  1. ACTEMRA [Suspect]
     Active Substance: TOCILIZUMAB
     Indication: PRODUCT USED FOR UNKNOWN INDICATION
     Route: 065
  2. HUMIRA [Concomitant]
     Active Substance: ADALIMUMAB
  3. ENBREL [Concomitant]
     Active Substance: ETANERCEPT

REACTIONS (10)
  - Drug ineffective [Unknown]
  - Localised infection [Unknown]
  - Hordeolum [Unknown]
  - Herpes zoster [Unknown]
  - Weight increased [Unknown]
  - Eye infection [Unknown]
  - Blood cholesterol increased [Unknown]
  - Drug effect incomplete [Unknown]
  - Urticaria [Unknown]
  - Eye ulcer [Unknown]
